FAERS Safety Report 9144089 (Version 4)
Quarter: 2014Q1

REPORT INFORMATION
  Report Type: Report from Study
  Country: NL (occurrence: NL)
  Receive Date: 20130306
  Receipt Date: 20140210
  Transmission Date: 20141002
  Serious: Yes (Hospitalization)
  Sender: FDA-Public Use
  Company Number: NL-ROCHE-1045056

PATIENT
  Age: 65 Year
  Sex: Female
  Weight: 80 kg

DRUGS (54)
  1. PEGFILGRASTIM [Suspect]
     Route: 058
     Dates: start: 20120526
  2. PEGFILGRASTIM [Suspect]
     Route: 058
     Dates: start: 20120505
  3. PEGFILGRASTIM [Suspect]
     Route: 058
     Dates: start: 20120407
  4. PEGFILGRASTIM [Suspect]
     Route: 058
     Dates: start: 20120220
  5. CYCLOPHOSPHAMIDE [Suspect]
     Indication: DIFFUSE LARGE B-CELL LYMPHOMA
     Dosage: LAST DOSE:25/MAY/2012, TEMPORARILY DISCONTINUED
     Route: 042
     Dates: start: 20120615
  6. CYCLOPHOSPHAMIDE [Suspect]
     Route: 042
     Dates: start: 20120323
  7. CYCLOPHOSPHAMIDE [Suspect]
     Route: 042
     Dates: start: 20120504
  8. CYCLOPHOSPHAMIDE [Suspect]
     Route: 042
     Dates: start: 20120525
  9. CYCLOPHOSPHAMIDE [Suspect]
     Route: 042
     Dates: start: 20120615
  10. CYCLOPHOSPHAMIDE [Suspect]
     Route: 042
     Dates: start: 20120406
  11. CYCLOPHOSPHAMIDE [Suspect]
     Route: 042
     Dates: start: 20120220
  12. DOXORUBICIN [Suspect]
     Indication: DIFFUSE LARGE B-CELL LYMPHOMA
     Dosage: LAST DOSE:25/MAY/2012, TEMPORARILY DISCONTINUED
     Route: 042
     Dates: start: 20120223
  13. DOXORUBICIN [Suspect]
     Route: 042
     Dates: start: 20120323
  14. DOXORUBICIN [Suspect]
     Route: 042
     Dates: start: 20120504
  15. DOXORUBICIN [Suspect]
     Route: 042
     Dates: start: 20120525
  16. DOXORUBICIN [Suspect]
     Route: 042
     Dates: start: 20120615
  17. DOXORUBICIN [Suspect]
     Route: 042
     Dates: start: 20120406
  18. DOXORUBICIN [Suspect]
     Route: 042
     Dates: start: 20120220
  19. PREDNISONE [Suspect]
     Indication: DIFFUSE LARGE B-CELL LYMPHOMA
     Dosage: LAST DOSE:25/MAY/2012, TEMPORARILY DISCONTINUED
     Route: 048
     Dates: start: 20120223
  20. PREDNISONE [Suspect]
     Route: 042
     Dates: start: 20120323
  21. PREDNISONE [Suspect]
     Dosage: LAST DOSE: 08/MAY/2012
     Route: 042
     Dates: start: 20120504
  22. PREDNISONE [Suspect]
     Dosage: LAST DOSE:29/MAY/2012
     Route: 048
     Dates: start: 20120525
  23. PREDNISONE [Suspect]
     Route: 048
     Dates: start: 20120615
  24. PREDNISONE [Suspect]
     Route: 048
     Dates: start: 20120406
  25. PREDNISONE [Suspect]
     Route: 048
     Dates: start: 20120220
  26. VINCRISTINE [Suspect]
     Indication: DIFFUSE LARGE B-CELL LYMPHOMA
     Dosage: LAST DOSE:25/MAY/2012, TEMPORARILY DISCONTINUED
     Route: 042
     Dates: start: 20120223
  27. VINCRISTINE [Suspect]
     Route: 042
     Dates: start: 20120323
  28. VINCRISTINE [Suspect]
     Route: 042
     Dates: start: 20120504
  29. VINCRISTINE [Suspect]
     Route: 042
     Dates: start: 20120525
  30. VINCRISTINE [Suspect]
     Route: 042
     Dates: start: 20120615
  31. VINCRISTINE [Suspect]
     Route: 042
     Dates: start: 20120406
  32. VINCRISTINE [Suspect]
     Route: 042
     Dates: start: 20120221
  33. CARBASALATE CALCIUM [Concomitant]
     Indication: EMBOLISM
     Dosage: DATE OF THE LAST DOSE ADMINISTERED PRIOR TO THE SAE: 13/APR/2012
     Route: 048
  34. CARBASALATE CALCIUM [Concomitant]
     Indication: TRANSIENT ISCHAEMIC ATTACK
  35. TRAMADOL [Concomitant]
     Indication: PAIN
     Route: 048
     Dates: start: 20120406, end: 20120602
  36. TRAMADOL [Concomitant]
     Dosage: DATE OF THE LAST DOSE ADMINISTERED PRIOR TO THE SAE: 13/APR/2012
     Route: 048
  37. PANTOPRAZOLE [Concomitant]
     Dosage: DATE OF LAST DOSE: 25/MAY/2012
     Route: 048
     Dates: start: 20111031, end: 20120602
  38. PARACETAMOL [Concomitant]
     Indication: PAIN
     Dosage: WHEN NEEDED
     Route: 048
  39. HYDROCHLOROTHIAZIDE [Concomitant]
     Indication: HYPERTENSION
     Route: 048
     Dates: start: 20111031
  40. ENALAPRIL [Concomitant]
     Indication: HYPERTENSION
     Route: 048
     Dates: start: 20111031
  41. EMEND [Concomitant]
     Indication: PROPHYLAXIS
     Dosage: LAST DOSE: 25/MAR/2012
     Route: 048
     Dates: start: 20120323
  42. ZOLPIDEM [Concomitant]
     Indication: SLEEP DISORDER
     Dosage: LAST DOSE : 30/MAR/2012
     Route: 048
     Dates: start: 20111031
  43. MOVICOLON [Concomitant]
     Dosage: 1 SACHET DAILY, DATE OF LAST DOSE PRIOR TO SAE: 26/MAY/2012
     Route: 048
     Dates: start: 20120323, end: 20120602
  44. ACETYLSALICYLIC ACID [Concomitant]
     Dosage: DATE OF LAST DOSE PRIOR TO SAE: 20/MAY/2012
     Route: 048
     Dates: start: 20111031, end: 20120602
  45. AUGMENTIN [Concomitant]
     Indication: URINARY TRACT INFECTION
     Dosage: LAST DOSE  : 27/FEB/2012
     Route: 042
     Dates: start: 20120220
  46. RITUXIMAB [Suspect]
     Indication: DIFFUSE LARGE B-CELL LYMPHOMA
     Dosage: LAST DOSE:25/MAY/2012, TEMPORARILY DISCONTINUED
     Route: 042
     Dates: start: 20120223
  47. RITUXIMAB [Suspect]
     Route: 042
     Dates: start: 20120322
  48. RITUXIMAB [Suspect]
     Route: 042
     Dates: start: 20120504
  49. RITUXIMAB [Suspect]
     Route: 042
     Dates: start: 20120525
  50. RITUXIMAB [Suspect]
     Route: 042
     Dates: start: 20120615
  51. RITUXIMAB [Suspect]
     Route: 042
     Dates: start: 20120406
  52. RITUXIMAB [Suspect]
     Route: 042
     Dates: start: 20120220
  53. PEGFILGRASTIM [Suspect]
     Indication: DIFFUSE LARGE B-CELL LYMPHOMA
     Dosage: AST DOSE:25/MAY/2012, TEMPORARILY DISCONTINUED
     Route: 058
     Dates: start: 20120224
  54. PEGFILGRASTIM [Suspect]
     Route: 058
     Dates: start: 20120324

REACTIONS (5)
  - Gastric ulcer [Recovered/Resolved]
  - Febrile neutropenia [Recovered/Resolved]
  - Abdominal pain [Recovered/Resolved]
  - Diarrhoea [Unknown]
  - Pneumonia [Recovered/Resolved]
